FAERS Safety Report 22113229 (Version 1)
Quarter: 2023Q1

REPORT INFORMATION
  Report Type: Spontaneous
  Country: US (occurrence: US)
  Receive Date: 20230320
  Receipt Date: 20230320
  Transmission Date: 20230418
  Serious: No
  Sender: FDA-Public Use
  Company Number: US-ELI_LILLY_AND_COMPANY-US202303007618

PATIENT
  Sex: Female

DRUGS (8)
  1. MOUNJARO [Interacting]
     Active Substance: TIRZEPATIDE
     Indication: Glucose tolerance impaired
     Dosage: 2.5 MG, UNKNOWN
     Route: 065
     Dates: start: 202212
  2. MOUNJARO [Interacting]
     Active Substance: TIRZEPATIDE
     Indication: Weight decreased
  3. ESTRADIOL [Interacting]
     Active Substance: ESTRADIOL
     Indication: Menopause
     Dosage: 1 DOSAGE FORM, DAILY
     Route: 065
     Dates: start: 202211
  4. ESTRADIOL [Interacting]
     Active Substance: ESTRADIOL
     Indication: Intermenstrual bleeding
  5. ESTRADIOL [Interacting]
     Active Substance: ESTRADIOL
     Indication: Menstrual disorder
  6. PROMETRIUM [Interacting]
     Active Substance: PROGESTERONE
     Indication: Menopause
     Dosage: 1 DOSAGE FORM, DAILY
     Route: 048
     Dates: start: 202211
  7. PROMETRIUM [Interacting]
     Active Substance: PROGESTERONE
     Indication: Intermenstrual bleeding
  8. PROMETRIUM [Interacting]
     Active Substance: PROGESTERONE
     Indication: Menstrual disorder

REACTIONS (4)
  - Intermenstrual bleeding [Not Recovered/Not Resolved]
  - Menstrual disorder [Not Recovered/Not Resolved]
  - Off label use [Unknown]
  - Drug interaction [Not Recovered/Not Resolved]

NARRATIVE: CASE EVENT DATE: 20221201
